FAERS Safety Report 9495239 (Version 7)
Quarter: 2013Q4

REPORT INFORMATION
  Report Type: Spontaneous
  Country: US (occurrence: US)
  Receive Date: 20130903
  Receipt Date: 20131121
  Transmission Date: 20140711
  Serious: Yes (Hospitalization, Other)
  Sender: FDA-Public Use
  Company Number: US-ASTRAZENECA-2013SE65848

PATIENT
  Age: 85 Year
  Sex: Female
  Weight: 81.6 kg

DRUGS (37)
  1. SYMBICORT [Suspect]
     Indication: ASTHMA
     Dosage: 320 MCG BID
     Route: 055
     Dates: start: 20100416
  2. SYMBICORT [Suspect]
     Indication: CHRONIC OBSTRUCTIVE PULMONARY DISEASE
     Dosage: 320 MCG BID
     Route: 055
     Dates: start: 20100416
  3. SYMBICORT [Suspect]
     Indication: ASTHMA
     Dosage: 160/4.5 MG 2 PUFFS BID
     Route: 055
     Dates: start: 20130416
  4. SYMBICORT [Suspect]
     Indication: CHRONIC OBSTRUCTIVE PULMONARY DISEASE
     Dosage: 160/4.5 MG 2 PUFFS BID
     Route: 055
     Dates: start: 20130416
  5. SYMBICORT [Suspect]
     Indication: ASTHMA
     Dosage: 180/4.5 MCG 2 PUFF BID
     Route: 055
  6. SYMBICORT [Suspect]
     Indication: CHRONIC OBSTRUCTIVE PULMONARY DISEASE
     Dosage: 180/4.5 MCG 2 PUFF BID
     Route: 055
  7. OMEPRAZOLE [Suspect]
     Indication: GASTROOESOPHAGEAL REFLUX DISEASE
     Route: 048
     Dates: start: 20130416
  8. BETHANECHOL CHLORIDE [Concomitant]
     Indication: BLADDER DISORDER
     Route: 048
  9. PRAVACHOL [Concomitant]
     Indication: BLOOD CHOLESTEROL ABNORMAL
     Route: 048
     Dates: start: 20130416
  10. AMLODIPINE [Concomitant]
     Route: 048
     Dates: start: 20130416
  11. SINGULAIR [Concomitant]
     Route: 048
     Dates: start: 20130416
  12. ASPIRIN [Concomitant]
     Route: 048
     Dates: start: 20111109
  13. TRAVASTAN [Concomitant]
     Indication: GLAUCOMA
     Route: 047
     Dates: start: 20120116
  14. ALLERGY PILL [Concomitant]
     Indication: MULTIPLE ALLERGIES
  15. CRANBERRY FRUIT [Concomitant]
     Indication: BLADDER DISORDER
     Dates: start: 20111109
  16. REFRESH TEARS OTC [Concomitant]
     Dates: start: 20111109
  17. NEBULIZER-ALBUTEROL [Concomitant]
  18. MIRILAX DAILUA T HOUR OF SLEEP [Concomitant]
     Indication: CONSTIPATION
  19. FLONASE [Concomitant]
     Route: 045
     Dates: start: 20120215
  20. ZYRTEC [Concomitant]
     Route: 048
     Dates: start: 20120215
  21. VITAMIN B-12 [Concomitant]
     Dates: start: 20111109
  22. VITAMIN B-12 [Concomitant]
  23. DULCOLAX [Concomitant]
     Route: 048
     Dates: start: 20111109
  24. BENEFIBER CALCIUM [Concomitant]
  25. VIACTIV MULTIVITAMIN [Concomitant]
     Dates: start: 20111109
  26. VIACTIV MULTIVITAMIN [Concomitant]
  27. CIPRO [Concomitant]
     Indication: CYSTITIS
     Route: 048
  28. CIPRO [Concomitant]
     Indication: URINARY RETENTION
     Route: 048
  29. MVI (MULTIVITAMINS) [Concomitant]
  30. CETRIZINE [Concomitant]
     Indication: MULTIPLE ALLERGIES
  31. BENZONATATE [Concomitant]
     Indication: COUGH
     Dosage: AS NEEDED
  32. CIPROFLOXACIN [Concomitant]
     Indication: CYSTITIS
  33. PREDNISONE [Concomitant]
     Indication: COUGH
  34. ADVAIR [Concomitant]
     Dosage: HFA 230/21
  35. DULERA [Concomitant]
  36. AZYTHROMYCIN [Concomitant]
     Dates: start: 20131112
  37. METHYLTHRED (TAPER PACK) STEROID [Concomitant]
     Dates: start: 20131112

REACTIONS (18)
  - Pneumonia [Recovered/Resolved]
  - Cataract [Recovered/Resolved]
  - Productive cough [Unknown]
  - Wheezing [Unknown]
  - Dyspnoea [Unknown]
  - Dyspnoea [Not Recovered/Not Resolved]
  - Pulmonary congestion [Not Recovered/Not Resolved]
  - Multiple allergies [Unknown]
  - Body height decreased [Unknown]
  - Urinary tract infection [Unknown]
  - Rhinitis [Unknown]
  - Urinary retention [Unknown]
  - Cystitis [Unknown]
  - Musculoskeletal chest pain [Not Recovered/Not Resolved]
  - Cough [Unknown]
  - Dysphonia [Unknown]
  - Intentional drug misuse [Unknown]
  - Drug dose omission [Unknown]
